FAERS Safety Report 23611910 (Version 2)
Quarter: 2024Q1

REPORT INFORMATION
  Report Type: Report from Study
  Country: EG (occurrence: EG)
  Receive Date: 20240308
  Receipt Date: 20240321
  Transmission Date: 20240410
  Serious: Yes (Other)
  Sender: FDA-Public Use
  Company Number: EG-SANDOZ-SDZ2024EG024658

PATIENT
  Sex: Female
  Weight: 100 kg

DRUGS (1)
  1. HYRIMOZ [Suspect]
     Active Substance: ADALIMUMAB-ADAZ
     Indication: Rheumatoid arthritis
     Dosage: 40 MG, Q2W (EVERY OTHER WEEK), (ACCORDING TO HELPAT DIGITAL SYSTEM), STOPPED-3 MONTHS AGO
     Route: 058
     Dates: start: 20220501

REACTIONS (2)
  - Intentional dose omission [Unknown]
  - Fatigue [Not Recovered/Not Resolved]
